FAERS Safety Report 5672734-2 (Version None)
Quarter: 2008Q1

REPORT INFORMATION
  Report Type: 
  Country: None (occurrence: None)
  Receive Date: 20080317
  Receipt Date: 20080304
  Transmission Date: 20080703
  Serious: Yes (Hospitalization)
  Sender: FDA-Public Use
  Company Number: CLOF-10605

PATIENT
  Age: 71 Year
  Sex: Female

DRUGS (30)
  1. CLOFARABINE (CLOFARABINE) 43.5MG [Suspect]
     Indication: ACUTE MYELOID LEUKAEMIA
     Dosage: 30 MG/M2, QD, INTRAVENOUS; 20 MG/M2, QD, INTRAVENOUS
     Route: 042
     Dates: start: 20070517, end: 20070523
  2. CLOFARABINE (CLOFARABINE) 43.5MG [Suspect]
     Indication: ACUTE MYELOID LEUKAEMIA
     Dosage: 30 MG/M2, QD, INTRAVENOUS; 20 MG/M2, QD, INTRAVENOUS
     Route: 042
     Dates: start: 20070709, end: 20070712
  3. BENAZEPRIL HCL [Concomitant]
  4. MECLOZINE (MECLOZINE) [Concomitant]
  5. LOVASTATIN [Concomitant]
  6. MEGACE [Concomitant]
  7. ZANTAC [Concomitant]
  8. SOLU-CORTEF [Concomitant]
  9. PHENYTOIN [Concomitant]
  10. AMICAR [Concomitant]
  11. DILTIAZEM (DILTIAZEM HYDROCHLORIDE) [Concomitant]
  12. DECADRON (DEXAMETHASONE SODIUM SUCCINATE) [Concomitant]
  13. LISINOPRIL (LISINOPRIL DIHYDRATE) [Concomitant]
  14. ALLOPURINOL [Concomitant]
  15. ACYCLOVIR [Concomitant]
  16. BENZONATATE [Concomitant]
  17. VANCOMYCIN HYDROCHLORIDE [Concomitant]
  18. OXYGEN (OXYGEN) [Concomitant]
  19. MAXPIME (CEFEPIME HYDROCHLORIDE) [Concomitant]
  20. NOVOLOG [Concomitant]
  21. NOVOLIN R [Concomitant]
  22. MEPHYTON (PHYTOMENADIONE) [Concomitant]
  23. MAGNESIUM SULFATE [Concomitant]
  24. POTASSIUM CHLORIDE [Concomitant]
  25. LORAZEPAM [Concomitant]
  26. AMBIEN [Concomitant]
  27. DIPHENHYDRAMINE (DIPHENHYDRAMINE, SODIUM CITRATE) [Concomitant]
  28. FUROSEMIDE (FUROSEMIDE SODIUM) [Concomitant]
  29. BACTRIM DS [Concomitant]
  30. SLOW-MAG (MAGNESIUM CHLORIDE ANHYDROUS) [Concomitant]

REACTIONS (13)
  - BLOOD CREATININE INCREASED [None]
  - BLOOD MAGNESIUM DECREASED [None]
  - BLOOD POTASSIUM DECREASED [None]
  - BLOOD SODIUM DECREASED [None]
  - BLOOD UREA INCREASED [None]
  - CHOLELITHIASIS [None]
  - GLOMERULAR FILTRATION RATE DECREASED [None]
  - NEUTROPHIL PERCENTAGE INCREASED [None]
  - PANCREATITIS ACUTE [None]
  - PCO2 DECREASED [None]
  - PLATELET DISORDER [None]
  - RENAL DISORDER [None]
  - WHITE BLOOD CELL COUNT DECREASED [None]
